FAERS Safety Report 4330466-7 (Version None)
Quarter: 2004Q2

REPORT INFORMATION
  Report Type: 
  Country: None (occurrence: None)
  Receive Date: 20040401
  Receipt Date: 20040401
  Transmission Date: 20050107
  Serious: Yes (Death, Hospitalization)
  Sender: FDA-Public Use
  Company Number: None

PATIENT
  Age: 74 Year

DRUGS (2)
  1. PARAPLATIN [Suspect]
  2. GEMZAR [Suspect]

REACTIONS (4)
  - DIARRHOEA [None]
  - HYPOTENSION [None]
  - PANCYTOPENIA [None]
  - STOMATITIS [None]
